FAERS Safety Report 19750827 (Version 1)
Quarter: 2021Q3

REPORT INFORMATION
  Report Type: Spontaneous
  Country: US (occurrence: US)
  Receive Date: 20210826
  Receipt Date: 20210826
  Transmission Date: 20211014
  Serious: Yes (Hospitalization)
  Sender: FDA-Public Use
  Company Number: US-ADAMAS PHARMA, LLC-2021ADA01996

PATIENT
  Age: 77 Year
  Sex: Male

DRUGS (9)
  1. GOCOVRI [Suspect]
     Active Substance: AMANTADINE
     Indication: DYSKINESIA
     Dosage: 137 MG, 1X/DAY EVERY MORNING
     Route: 048
     Dates: start: 20180811
  2. CALCIUM 500 + D [Concomitant]
     Active Substance: CALCIUM\VITAMIN D
  3. LISINOPRIL. [Concomitant]
     Active Substance: LISINOPRIL
  4. TRIHEXYPHENIDYL [Concomitant]
     Active Substance: TRIHEXYPHENIDYL
  5. GABAPENTIN. [Concomitant]
     Active Substance: GABAPENTIN
  6. MACUVITE EYE CARE [Concomitant]
  7. VERAPAMIL ER [Concomitant]
     Active Substance: VERAPAMIL HYDROCHLORIDE
  8. UNSPECIFIED LEVODOPA?BASED THERAPY [Concomitant]
     Active Substance: LEVODOPA
  9. ZANTAC [Concomitant]
     Active Substance: RANITIDINE HYDROCHLORIDE

REACTIONS (2)
  - Product dose omission issue [Unknown]
  - Intestinal obstruction [Unknown]

NARRATIVE: CASE EVENT DATE: 20210810
